FAERS Safety Report 16092481 (Version 1)
Quarter: 2019Q1

REPORT INFORMATION
  Report Type: Spontaneous
  Country: GB (occurrence: GB)
  Receive Date: 20190319
  Receipt Date: 20190319
  Transmission Date: 20190418
  Serious: Yes (Other)
  Sender: FDA-Public Use
  Company Number: PHHY2019GB062055

PATIENT
  Age: 28 Year
  Sex: Male

DRUGS (3)
  1. EPHEDRINE. [Suspect]
     Active Substance: EPHEDRINE
     Indication: SCHIZOPHRENIA
     Dosage: 85 MG, UNK
     Route: 065
  2. ETHYLMORPHINE [Suspect]
     Active Substance: ETHYLMORPHINE
     Indication: SCHIZOPHRENIA
     Dosage: UNK
     Route: 065
  3. CODEINE PHOSPHATE [Suspect]
     Active Substance: CODEINE PHOSPHATE
     Indication: SCHIZOPHRENIA
     Dosage: 166 MG, QD  (1BOTTLE OF 250ML)
     Route: 065

REACTIONS (10)
  - Hallucination [Unknown]
  - Dysphoria [Unknown]
  - Psychotic disorder [Unknown]
  - Delusion [Unknown]
  - Withdrawal syndrome [Unknown]
  - Tremor [Unknown]
  - Hyperhidrosis [Unknown]
  - Drug abuse [Unknown]
  - Drug dependence [Unknown]
  - Tachycardia [Unknown]
